FAERS Safety Report 9641621 (Version 1)
Quarter: 2013Q4

REPORT INFORMATION
  Report Type: Spontaneous
  Country: FR (occurrence: FR)
  Receive Date: 20131023
  Receipt Date: 20131023
  Transmission Date: 20140711
  Serious: Yes (Hospitalization)
  Sender: FDA-Public Use
  Company Number: FR-GLAXOSMITHKLINE-B0930491A

PATIENT
  Age: 77 Year
  Sex: Male

DRUGS (13)
  1. VANCOMYCINE [Suspect]
     Indication: INTERVERTEBRAL DISCITIS
     Route: 042
     Dates: start: 20130725, end: 20130803
  2. MORPHINE [Concomitant]
     Dates: end: 20130801
  3. COAPROVEL [Concomitant]
  4. CARDENSIEL [Concomitant]
  5. DAFALGAN [Concomitant]
  6. LOVENOX [Concomitant]
  7. MERONEM [Concomitant]
     Indication: INTERVERTEBRAL DISCITIS
     Dates: start: 20130725
  8. PRIMPERAN [Concomitant]
     Dates: start: 20130801
  9. MOVICOL [Concomitant]
     Dates: start: 20130801
  10. SOLUMEDROL [Concomitant]
  11. MALARONE [Suspect]
     Indication: MALARIA
     Dosage: 4TAB PER DAY
     Route: 048
     Dates: start: 20130801, end: 20130803
  12. SKENAN [Suspect]
     Indication: PRODUCT USED FOR UNKNOWN INDICATION
     Dosage: 60MG TWICE PER DAY
     Route: 048
     Dates: start: 20130801
  13. ACTISKENAN [Suspect]
     Indication: PRODUCT USED FOR UNKNOWN INDICATION
     Dosage: 20MG SIX TIMES PER DAY
     Route: 048
     Dates: start: 20130801

REACTIONS (3)
  - Hallucination [Recovered/Resolved]
  - Encephalopathy [Recovered/Resolved]
  - Altered state of consciousness [Recovered/Resolved]
